FAERS Safety Report 12263616 (Version 1)
Quarter: 2016Q2

REPORT INFORMATION
  Report Type: Spontaneous
  Country: US (occurrence: None)
  Receive Date: 20160412
  Receipt Date: 20160412
  Transmission Date: 20160815
  Serious: Yes (Disabling)
  Sender: FDA-Public Use
  Company Number: None

PATIENT
  Age: 39 Year
  Sex: Female
  Weight: 68.04 kg

DRUGS (9)
  1. TRAZODONE [Concomitant]
     Active Substance: TRAZODONE HYDROCHLORIDE
  2. VITAMIN B COMPLEX [Concomitant]
     Active Substance: CYANOCOBALAMIN\DEXPANTHENOL\NIACINAMIDE\PYRIDOXINE HYDROCHLORIDE\RIBOFLAVIN 5^-PHOSPHATE SODIUM\THIAMINE HYDROCHLORIDE\VITAMIN B COMPLEX
  3. BUSPAR [Concomitant]
     Active Substance: BUSPIRONE HYDROCHLORIDE
  4. CIPROFLOXICIN [Suspect]
     Active Substance: CIPROFLOXACIN
  5. VIT D AND CALCIUM [Concomitant]
  6. MOXIFLOXICIN [Suspect]
     Active Substance: MOXIFLOXACIN
     Indication: SINUSITIS
     Dates: start: 20150801
  7. MAGNESIUM [Concomitant]
     Active Substance: MAGNESIUM
  8. ATIVAN [Concomitant]
     Active Substance: LORAZEPAM
  9. NORETHINDRONE. [Concomitant]
     Active Substance: NORETHINDRONE

REACTIONS (6)
  - Activities of daily living impaired [None]
  - Muscle spasms [None]
  - Walking aid user [None]
  - Neuropathy peripheral [None]
  - Arthralgia [None]
  - Sinusitis [None]

NARRATIVE: CASE EVENT DATE: 20150801
